FAERS Safety Report 7069490-2 (Version None)
Quarter: 2010Q4

REPORT INFORMATION
  Report Type: 
  Country: None (occurrence: None)
  Receive Date: 20101028
  Receipt Date: 20091209
  Transmission Date: 20110411
  Serious: No
  Sender: FDA-Public Use
  Company Number: US-WYE-H12562009

PATIENT
  Age: 60 Year
  Sex: Male
  Weight: 82.63 kg

DRUGS (1)
  1. ADVIL COLD AND SINUS [Suspect]
     Indication: SINUS HEADACHE
     Dosage: 1 LIQUI-GEL X 1
     Route: 048
     Dates: start: 20091207, end: 20091207

REACTIONS (2)
  - DIARRHOEA [None]
  - VOMITING [None]
